FAERS Safety Report 9761392 (Version 2)
Quarter: 2013Q4

REPORT INFORMATION
  Report Type: Spontaneous
  Country: NL (occurrence: NL)
  Receive Date: 20131216
  Receipt Date: 20131216
  Transmission Date: 20140711
  Serious: Yes (Life-Threatening, Other)
  Sender: FDA-Public Use
  Company Number: NL-009507513-1311NLD012902

PATIENT
  Age: 30 Year
  Sex: Female

DRUGS (2)
  1. NUVARING [Suspect]
     Dosage: UNK
     Route: 067
     Dates: start: 200511, end: 200711
  2. NUVARING [Suspect]
     Dosage: UNK
     Route: 067

REACTIONS (7)
  - Apparent death [Unknown]
  - Thrombosis [Unknown]
  - Pulmonary embolism [Unknown]
  - Panic disorder [Unknown]
  - Hypochondriasis [Unknown]
  - Unintended pregnancy [Recovered/Resolved]
  - Depression [Unknown]
